FAERS Safety Report 5517800-7 (Version None)
Quarter: 2007Q4

REPORT INFORMATION
  Report Type: 
  Country: None (occurrence: None)
  Receive Date: 20071113
  Receipt Date: 20071029
  Transmission Date: 20080405
  Serious: Yes (Hospitalization, Other)
  Sender: FDA-Public Use
  Company Number: HP200700096

PATIENT
  Age: 82 Year
  Sex: Male
  Weight: 80.7 kg

DRUGS (8)
  1. PANAFIL (PAPAIN, UREA, CHLOROPHYLLIN SODIUM COPPER COMPLEX) SPRAY [Suspect]
     Indication: DIABETIC ULCER
     Dosage: QD, TOPICAL
     Route: 061
     Dates: start: 20070201, end: 20070301
  2. INSULIN (INSULIN) INJECTION [Concomitant]
  3. METFORMIN HCL [Concomitant]
  4. PAROXETINE HCL [Concomitant]
  5. LISINOPRIL [Concomitant]
  6. GABAPENTIN [Concomitant]
  7. FLOMAX (MORNIFLUMATE) [Concomitant]
  8. NITROSTAT [Concomitant]

REACTIONS (3)
  - CELLULITIS [None]
  - DRUG INEFFECTIVE [None]
  - TOE AMPUTATION [None]
